FAERS Safety Report 13238864 (Version 1)
Quarter: 2017Q1

REPORT INFORMATION
  Report Type: Spontaneous
  Country: US (occurrence: US)
  Receive Date: 20170216
  Receipt Date: 20170216
  Transmission Date: 20170428
  Serious: Yes (Death, Other)
  Sender: FDA-Public Use
  Company Number: US-MALLINCKRODT-T201700437

PATIENT

DRUGS (1)
  1. H.P. ACTHAR [Suspect]
     Active Substance: CORTICOTROPIN
     Indication: PULMONARY SARCOIDOSIS
     Dosage: 80 IU TWICE WEEKLY
     Route: 065

REACTIONS (3)
  - Pulmonary sarcoidosis [Fatal]
  - Pneumonia [Unknown]
  - Respiratory tract infection [Fatal]
